FAERS Safety Report 8604855-6 (Version None)
Quarter: 2012Q3

REPORT INFORMATION
  Report Type: 
  Country: None (occurrence: None)
  Receive Date: 20120820
  Receipt Date: 20120813
  Transmission Date: 20120928
  Serious: Yes (Disabling)
  Sender: FDA-Public Use
  Company Number: ES-SANOFI-AVENTIS-2012SA058268

PATIENT
  Age: 66 Year
  Sex: Male

DRUGS (9)
  1. DIAZEPAM [Concomitant]
     Route: 048
  2. OMEPRAZOLE [Concomitant]
     Route: 048
  3. TRIPTORELIN [Concomitant]
     Route: 030
  4. FENTANYL [Concomitant]
     Dosage: 1 PARCHE / 72 HORAS
     Route: 062
  5. MORFINA [Concomitant]
     Route: 048
  6. PREDNISONE [Concomitant]
     Route: 048
  7. JEVTANA KIT [Suspect]
     Dosage: 37.6 MG/21 DIAS
     Route: 042
     Dates: start: 20120425, end: 20120425
  8. JEVTANA KIT [Suspect]
     Dosage: 37.6 MG/21 DIAS
     Route: 042
  9. DEXKETOPROFEN [Concomitant]
     Route: 048

REACTIONS (3)
  - MOTOR DYSFUNCTION [None]
  - INFUSION SITE EXTRAVASATION [None]
  - PERIPHERAL NERVE LESION [None]
